FAERS Safety Report 14364813 (Version 1)
Quarter: 2018Q1

REPORT INFORMATION
  Report Type: Report from Study
  Country: TR (occurrence: TR)
  Receive Date: 20180108
  Receipt Date: 20180108
  Transmission Date: 20180509
  Serious: Yes (Life-Threatening, Hospitalization, Other)
  Sender: FDA-Public Use
  Company Number: TR-ACTELION-A-NJ2018-165445

PATIENT
  Age: 65 Year
  Sex: Female

DRUGS (1)
  1. VENTAVIS [Suspect]
     Active Substance: ILOPROST
     Indication: PULMONARY ARTERIAL HYPERTENSION
     Dosage: UNK, 9ID
     Route: 055
     Dates: start: 20170811, end: 20171009

REACTIONS (4)
  - Cardiac disorder [Unknown]
  - Right ventricular failure [Recovering/Resolving]
  - General physical health deterioration [Recovering/Resolving]
  - Concomitant disease aggravated [Recovering/Resolving]

NARRATIVE: CASE EVENT DATE: 20171023
